FAERS Safety Report 17237291 (Version 1)
Quarter: 2020Q1

REPORT INFORMATION
  Report Type: Spontaneous
  Country: US (occurrence: US)
  Receive Date: 20200106
  Receipt Date: 20200106
  Transmission Date: 20200409
  Serious: No
  Sender: FDA-Public Use
  Company Number: US-PFIZER INC-2019329093

PATIENT
  Age: 64 Year
  Sex: Female
  Weight: 57.6 kg

DRUGS (1)
  1. LYRICA [Suspect]
     Active Substance: PREGABALIN
     Indication: DIABETIC NEUROPATHY
     Dosage: 225 MG, DAILY (75 MG CAPSULE, TAKE 2 CAPSULES IN THE MORNING AND 1 IN THE EVENING.)

REACTIONS (1)
  - Pain [Unknown]
